FAERS Safety Report 20263854 (Version 1)
Quarter: 2021Q4

REPORT INFORMATION
  Report Type: Spontaneous
  Country: CN (occurrence: CN)
  Receive Date: 20211231
  Receipt Date: 20211231
  Transmission Date: 20220303
  Serious: Yes (Hospitalization, Disabling, Other)
  Sender: FDA-Public Use
  Company Number: CN-009507513-2112CHN009519

PATIENT
  Age: 46 Year
  Sex: Male
  Weight: 69 kg

DRUGS (2)
  1. CILASTATIN SODIUM\IMIPENEM [Suspect]
     Active Substance: CILASTATIN SODIUM\IMIPENEM
     Indication: Infection
     Dosage: 1 G, Q6H
     Route: 041
     Dates: start: 20211108, end: 20211115
  2. SODIUM CHLORIDE [Concomitant]
     Active Substance: SODIUM CHLORIDE
     Indication: Medication dilution
     Dosage: 100 ML, Q6H
     Route: 041
     Dates: start: 20211108, end: 20211115

REACTIONS (1)
  - Drug-induced liver injury [Recovering/Resolving]

NARRATIVE: CASE EVENT DATE: 20211110
